FAERS Safety Report 10185547 (Version 4)
Quarter: 2016Q4

REPORT INFORMATION
  Report Type: Spontaneous
  Country: US (occurrence: US)
  Receive Date: 20140521
  Receipt Date: 20161227
  Transmission Date: 20170206
  Serious: No
  Sender: FDA-Public Use
  Company Number: US-PFIZER INC-2014135027

PATIENT
  Age: 59 Year
  Sex: Female

DRUGS (1)
  1. RELPAX [Suspect]
     Active Substance: ELETRIPTAN HYDROBROMIDE
     Indication: MIGRAINE
     Dosage: 40 MG TAB, TAKE 1 AT ONSET OF MHA, MAY REPEAT IN 2 HRS, NOT TO EXCEED 2 IN 24 HRS

REACTIONS (2)
  - Somnolence [Unknown]
  - Dizziness [Unknown]
